FAERS Safety Report 9853011 (Version 1)
Quarter: 2014Q1

REPORT INFORMATION
  Report Type: Spontaneous
  Country: AU (occurrence: None)
  Receive Date: 20140127
  Receipt Date: 20140127
  Transmission Date: 20141002
  Serious: Yes (Other)
  Sender: FDA-Public Use
  Company Number: 2013000432

PATIENT
  Sex: Male

DRUGS (3)
  1. ACEON (PERINDOPRIL ERBUMINE) TABLET [Suspect]
     Indication: PRODUCT USED FOR UNKNOWN INDICATION
  2. MINAX [Suspect]
     Indication: PRODUCT USED FOR UNKNOWN INDICATION
  3. UREX [Suspect]
     Indication: PRODUCT USED FOR UNKNOWN INDICATION

REACTIONS (7)
  - Dementia [None]
  - Confusional state [None]
  - Blood creatine phosphokinase increased [None]
  - Chills [None]
  - Decreased appetite [None]
  - Renal failure acute [None]
  - Pyrexia [None]
